FAERS Safety Report 8493219-4 (Version None)
Quarter: 2012Q3

REPORT INFORMATION
  Report Type: 
  Country: None (occurrence: None)
  Receive Date: 20120706
  Receipt Date: 20120627
  Transmission Date: 20120928
  Serious: Yes (Hospitalization)
  Sender: FDA-Public Use
  Company Number: PHHY2012JP056332

PATIENT
  Sex: Male
  Weight: 56 kg

DRUGS (10)
  1. CEFMETAZON [Concomitant]
     Indication: PROPHYLAXIS
     Dosage: 2 G, UNK
     Route: 041
     Dates: start: 20090408, end: 20090413
  2. IMATINIB MESYLATE [Suspect]
     Indication: GASTROINTESTINAL STROMAL TUMOUR
     Dosage: 400 MG
     Route: 048
     Dates: start: 20050225, end: 20070709
  3. AMOBAN [Concomitant]
     Indication: INSOMNIA
     Dosage: 7.5 MG
     Route: 048
     Dates: start: 20021028, end: 20100224
  4. IMATINIB MESYLATE [Suspect]
     Dosage: 400 MG
     Route: 048
     Dates: start: 20070803, end: 20071130
  5. IMATINIB MESYLATE [Suspect]
     Dosage: 400 MG
     Route: 048
     Dates: start: 20090424, end: 20090813
  6. ALUMINIUM HYDR GEL W/MAGNESIUM HYDROXIDE [Concomitant]
     Indication: DYSPEPSIA
     Dosage: 24 ML, UNK
     Route: 048
     Dates: start: 20030303, end: 20100224
  7. GASMOTIN [Concomitant]
     Indication: ABDOMINAL DISCOMFORT
     Dosage: 15 MG
     Route: 048
     Dates: start: 20021021, end: 20100224
  8. FOIPAN [Concomitant]
     Indication: DYSPEPSIA
     Dosage: 300 MG
     Dates: start: 20021209, end: 20100224
  9. IMATINIB MESYLATE [Suspect]
     Dosage: 400 MG
     Route: 048
     Dates: start: 20071221, end: 20090312
  10. NIZATIDINE [Concomitant]
     Indication: DYSPEPSIA
     Dosage: 300 MG
     Route: 048
     Dates: start: 20030203, end: 20100224

REACTIONS (4)
  - SUBDIAPHRAGMATIC ABSCESS [None]
  - PYREXIA [None]
  - INGUINAL HERNIA [None]
  - ABDOMINAL DISCOMFORT [None]
